FAERS Safety Report 23083800 (Version 2)
Quarter: 2023Q4

REPORT INFORMATION
  Report Type: Report from Study
  Country: DE (occurrence: DE)
  Receive Date: 20231019
  Receipt Date: 20231204
  Transmission Date: 20240110
  Serious: Yes (Hospitalization, Other)
  Sender: FDA-Public Use
  Company Number: DE-IPSEN Group, Research and Development-2023-23737

PATIENT

DRUGS (4)
  1. CABOZANTINIB [Suspect]
     Active Substance: CABOZANTINIB
     Indication: Adrenocortical carcinoma
     Dosage: 40 MG
     Route: 048
     Dates: start: 20230811
  2. CABOZANTINIB [Suspect]
     Active Substance: CABOZANTINIB
     Indication: Off label use
  3. PREDNISONE [Concomitant]
     Active Substance: PREDNISONE
     Indication: Colitis
     Dosage: PRIOR CPI INDUCED COLITIS 10 MG PO
     Route: 048
     Dates: start: 20230803
  4. EDOXABAN [Concomitant]
     Active Substance: EDOXABAN
     Indication: Pulmonary embolism
     Dosage: 60 MG
     Route: 048
     Dates: start: 202012

REACTIONS (10)
  - Mineralocorticoid deficiency [Recovered/Resolved]
  - Vertigo [Recovered/Resolved]
  - General physical health deterioration [Recovered/Resolved]
  - Hyponatraemia [Recovered/Resolved]
  - Dizziness [Recovered/Resolved]
  - Decreased appetite [Recovered/Resolved]
  - Weight decreased [Recovered/Resolved]
  - Palmar-plantar erythrodysaesthesia syndrome [Recovered/Resolved]
  - Mucosal inflammation [Recovered/Resolved]
  - Off label use [Unknown]

NARRATIVE: CASE EVENT DATE: 20230811
